FAERS Safety Report 10508715 (Version 3)
Quarter: 2015Q2

REPORT INFORMATION
  Report Type: Report from Study
  Country: CA (occurrence: CA)
  Receive Date: 20141009
  Receipt Date: 20150623
  Transmission Date: 20150821
  Serious: Yes (Death, Hospitalization, Other)
  Sender: FDA-Public Use
  Company Number: CA-BRISTOL-MYERS SQUIBB COMPANY-21450838

PATIENT
  Age: 56 Year
  Sex: Female

DRUGS (1)
  1. ABATACEPT [Suspect]
     Active Substance: ABATACEPT
     Indication: RHEUMATOID ARTHRITIS
     Dosage: 125 MG, UNK
     Route: 058
     Dates: start: 20140621

REACTIONS (7)
  - Heart rate decreased [Unknown]
  - Protein urine present [Unknown]
  - C-reactive protein increased [Unknown]
  - Nephritis [Unknown]
  - Blood creatinine abnormal [Unknown]
  - Platelet count decreased [Unknown]
  - Malnutrition [Fatal]

NARRATIVE: CASE EVENT DATE: 201409
